FAERS Safety Report 13611140 (Version 1)
Quarter: 2017Q2

REPORT INFORMATION
  Report Type: Spontaneous
  Country: US (occurrence: US)
  Receive Date: 20170603
  Receipt Date: 20170603
  Transmission Date: 20170830
  Serious: Yes (Disabling, Other)
  Sender: FDA-Public Use
  Company Number: None

PATIENT
  Age: 44 Year
  Sex: Female
  Weight: 87.75 kg

DRUGS (1)
  1. BUPROPION HYDROCHLORIDE XL [Suspect]
     Active Substance: BUPROPION HYDROCHLORIDE
     Indication: DEPRESSION
     Dosage: ?          QUANTITY:90 TABLET(S);?
     Route: 048
     Dates: start: 20170423, end: 20170423

REACTIONS (6)
  - Disease recurrence [None]
  - Vision blurred [None]
  - Headache [None]
  - Product substitution issue [None]
  - Fatigue [None]
  - Depression [None]

NARRATIVE: CASE EVENT DATE: 20170423
